FAERS Safety Report 7399563-6 (Version None)
Quarter: 2011Q2

REPORT INFORMATION
  Report Type: 
  Country: None (occurrence: None)
  Receive Date: 20110407
  Receipt Date: 20110303
  Transmission Date: 20111010
  Serious: Yes (Hospitalization, Other)
  Sender: FDA-Public Use
  Company Number: US-BAYER-201022173NA

PATIENT
  Sex: Female
  Weight: 79.365 kg

DRUGS (5)
  1. OCELLA [Suspect]
     Indication: CONTRACEPTION
     Dosage: UNK UNK, QD
     Dates: start: 20080101, end: 20080901
  2. OCELLA [Suspect]
     Indication: ACNE
  3. UNCODEABLE ^UNKNOWN MANUFACTURER^ [Concomitant]
     Indication: ABORTION
     Dosage: UNK
     Dates: start: 20080102
  4. YAZ [Suspect]
     Indication: CONTRACEPTION
     Dosage: UNK UNK, QD
     Dates: start: 20080101, end: 20080901
  5. YAZ [Suspect]
     Indication: ACNE

REACTIONS (6)
  - CHOLELITHIASIS [None]
  - CHOLECYSTITIS [None]
  - PAIN [None]
  - ABDOMINAL PAIN UPPER [None]
  - PANCREATITIS ACUTE [None]
  - GALLBLADDER DISORDER [None]
